FAERS Safety Report 9493562 (Version 1)
Quarter: 2013Q3

REPORT INFORMATION
  Report Type: Spontaneous
  Country: US (occurrence: US)
  Receive Date: 20130902
  Receipt Date: 20130902
  Transmission Date: 20140515
  Serious: No
  Sender: FDA-Public Use
  Company Number: US-PFIZER INC-2013248296

PATIENT
  Age: 44 Year
  Sex: Male

DRUGS (1)
  1. DEPO-TESTOSTERONE [Suspect]
     Dosage: UNK
     Dates: start: 2008

REACTIONS (4)
  - Blood viscosity increased [Unknown]
  - Asthenia [Recovered/Resolved]
  - Painful erection [Unknown]
  - Erectile dysfunction [Unknown]
